FAERS Safety Report 6598764-4 (Version None)
Quarter: 2010Q1

REPORT INFORMATION
  Report Type: 
  Country: None (occurrence: None)
  Receive Date: 20100224
  Receipt Date: 20100215
  Transmission Date: 20100710
  Serious: Yes (Hospitalization)
  Sender: FDA-Public Use
  Company Number: FR-JNJFOC-20090906674

PATIENT
  Age: 80 Year
  Sex: Female
  Weight: 49 kg

DRUGS (9)
  1. REMICADE [Suspect]
     Indication: RHEUMATOID ARTHRITIS
     Route: 042
  2. REMICADE [Suspect]
     Dosage: THIRD INFUSION
     Route: 042
  3. REMICADE [Suspect]
     Route: 042
  4. CORTANCYL [Suspect]
     Indication: RHEUMATOID ARTHRITIS
  5. METHOTREXATE [Concomitant]
     Indication: RHEUMATOID ARTHRITIS
  6. ACTONEL [Concomitant]
     Indication: OSTEOPOROSIS
  7. IXPRIM [Concomitant]
     Indication: RHEUMATOID ARTHRITIS
  8. KERLONE [Concomitant]
     Indication: EXTRASYSTOLES
  9. LANZOR [Concomitant]
     Indication: RHEUMATOID ARTHRITIS

REACTIONS (3)
  - ARRHYTHMIA [None]
  - ATRIAL FIBRILLATION [None]
  - PULMONARY TUBERCULOSIS [None]
